FAERS Safety Report 6039413-3 (Version None)
Quarter: 2009Q1

REPORT INFORMATION
  Report Type: 
  Country: None (occurrence: None)
  Receive Date: 20090114
  Receipt Date: 20090108
  Transmission Date: 20090719
  Serious: Yes (Death, Other)
  Sender: FDA-Public Use
  Company Number: 2008-03083

PATIENT
  Age: 65 Year
  Sex: Male
  Weight: 63 kg

DRUGS (9)
  1. VELCADE [Suspect]
     Indication: MULTIPLE MYELOMA
     Dosage: 1.3 MG/M2, INTRAVENOUS
     Route: 042
     Dates: start: 20080729, end: 20080808
  2. SODIUM ALGINATE (SODIUM ALGINATE) [Concomitant]
  3. VOLTAREN [Concomitant]
  4. NIZATIDINE [Concomitant]
  5. MUCOSTA (REBAMIPIDE) [Concomitant]
  6. URSO 250 [Concomitant]
  7. LASIX [Concomitant]
  8. IDOMETHINE (INDOMETACIN) [Concomitant]
  9. XYLOCAINE [Concomitant]

REACTIONS (16)
  - BLOOD LACTATE DEHYDROGENASE INCREASED [None]
  - CHEST PAIN [None]
  - CONDITION AGGRAVATED [None]
  - CRYSTAL URINE PRESENT [None]
  - DISEASE PROGRESSION [None]
  - DISORIENTATION [None]
  - INFECTION [None]
  - MALAISE [None]
  - MALIGNANT NEOPLASM PROGRESSION [None]
  - MULTIPLE MYELOMA [None]
  - PLEURAL EFFUSION [None]
  - PNEUMONIA [None]
  - PYREXIA [None]
  - RENAL FAILURE [None]
  - THROMBOCYTOPENIA [None]
  - TUMOUR LYSIS SYNDROME [None]
